FAERS Safety Report 19255817 (Version 1)
Quarter: 2021Q2

REPORT INFORMATION
  Report Type: Spontaneous
  Country: US (occurrence: US)
  Receive Date: 20210514
  Receipt Date: 20210514
  Transmission Date: 20210717
  Serious: Yes (Hospitalization, Other)
  Sender: FDA-Public Use
  Company Number: US-AUROBINDO-AUR-APL-2021-015720

PATIENT
  Age: 25 Year
  Sex: Female

DRUGS (7)
  1. ACETAMINOPHEN. [Suspect]
     Active Substance: ACETAMINOPHEN
     Dosage: 4000 MILLIGRAM, ONCE A DAY
     Route: 048
  2. ACETAMINOPHEN. [Suspect]
     Active Substance: ACETAMINOPHEN
     Dosage: 3000 MILLIGRAM, ONCE A DAY
     Route: 048
  3. HYDROCODONE BITARTRATE+ACETAMINOPHEN 5MG/300MG [Suspect]
     Active Substance: ACETAMINOPHEN\HYDROCODONE BITARTRATE
     Indication: PAIN
     Dosage: 1 DOSAGE FORM, 3 TIMES A DAY
     Route: 048
  4. ACETAMINOPHEN. [Suspect]
     Active Substance: ACETAMINOPHEN
     Indication: PAIN
     Dosage: 500 MILLIGRAM
     Route: 048
  5. ACETAMINOPHEN. [Suspect]
     Active Substance: ACETAMINOPHEN
     Dosage: 3000?4000 MG, ONCE A DAY
     Route: 048
  6. HYDROCODONE BITARTRATE+ACETAMINOPHEN 5MG/300MG [Suspect]
     Active Substance: ACETAMINOPHEN\HYDROCODONE BITARTRATE
     Dosage: 1 DOSAGE FORM, FOUR TIMES/DAY
     Route: 048
  7. AMOXICILLIN. [Concomitant]
     Active Substance: AMOXICILLIN
     Indication: PROPHYLAXIS
     Dosage: UNK
     Route: 065

REACTIONS (7)
  - Pyroglutamic acidosis [Recovered/Resolved]
  - Abdominal pain [Recovering/Resolving]
  - Maternal exposure during pregnancy [Recovering/Resolving]
  - Hepatic enzyme increased [Recovering/Resolving]
  - Toxicity to various agents [Recovering/Resolving]
  - Exposure during pregnancy [Unknown]
  - Metabolic acidosis [Recovered/Resolved]
